FAERS Safety Report 24245199 (Version 1)
Quarter: 2024Q3

REPORT INFORMATION
  Report Type: Report from Study
  Country: JP (occurrence: JP)
  Receive Date: 20240823
  Receipt Date: 20240823
  Transmission Date: 20241017
  Serious: Yes (Other)
  Sender: ABBVIE
  Company Number: JP-ABBVIE-5887839

PATIENT
  Age: 85 Year
  Sex: Female

DRUGS (1)
  1. GLECAPREVIR\PIBRENTASVIR [Suspect]
     Active Substance: GLECAPREVIR\PIBRENTASVIR
     Indication: Hepatitis C
     Dosage: GLECAPREVIR (300 MG DAILY)/PIBRENTASVIR (120 MG DAILY)
     Route: 048

REACTIONS (1)
  - Cerebral haemorrhage [Unknown]
